FAERS Safety Report 17807511 (Version 1)
Quarter: 2020Q2

REPORT INFORMATION
  Report Type: Spontaneous
  Country: US (occurrence: US)
  Receive Date: 20200520
  Receipt Date: 20200520
  Transmission Date: 20200714
  Serious: Yes (Hospitalization)
  Sender: FDA-Public Use
  Company Number: None

PATIENT
  Age: 77 Year
  Sex: Female

DRUGS (1)
  1. MYCOPHENOLATE MOFETIL (MYCOPHENOLATE MOFETIL 250MG CAP) [Suspect]
     Active Substance: MYCOPHENOLATE MOFETIL
     Indication: INTERSTITIAL LUNG DISEASE
     Route: 048
     Dates: start: 20200129, end: 20200510

REACTIONS (7)
  - Dysphagia [None]
  - Anaemia [None]
  - Oesophagitis [None]
  - Clostridium test positive [None]
  - Packed red blood cell transfusion [None]
  - Diarrhoea [None]
  - Decreased appetite [None]

NARRATIVE: CASE EVENT DATE: 20200501
